FAERS Safety Report 22184315 (Version 1)
Quarter: 2023Q2

REPORT INFORMATION
  Report Type: Report from Study
  Country: DE (occurrence: DE)
  Receive Date: 20230407
  Receipt Date: 20230407
  Transmission Date: 20230721
  Serious: Yes (Hospitalization)
  Sender: FDA-Public Use
  Company Number: DE-ABBVIE-4719429

PATIENT
  Age: 74 Year
  Sex: Male

DRUGS (2)
  1. CARBIDOPA\LEVODOPA [Suspect]
     Active Substance: CARBIDOPA\LEVODOPA
     Indication: Parkinson^s disease
     Dosage: MD 7.5ML; CRD 2.8ML/H; ED 1.5ML,?LAST ADMIN DATE MAR 2023
     Route: 050
     Dates: start: 20230308
  2. CARBIDOPA\LEVODOPA [Suspect]
     Active Substance: CARBIDOPA\LEVODOPA

REACTIONS (3)
  - Gastric fistula [Recovered/Resolved]
  - Stoma site inflammation [Recovered/Resolved]
  - Fistula inflammation [Recovered/Resolved]

NARRATIVE: CASE EVENT DATE: 20230324
